FAERS Safety Report 17560657 (Version 11)
Quarter: 2020Q4

REPORT INFORMATION
  Report Type: Report from Study
  Country: BR (occurrence: BR)
  Receive Date: 20200319
  Receipt Date: 20201204
  Transmission Date: 20210113
  Serious: Yes (Hospitalization)
  Sender: FDA-Public Use
  Company Number: BR-DAIICHI SANKYO (CHINA) HOLDINGS CO., LTD.-DSU-2020-108429

PATIENT
  Age: 34 Year
  Sex: Female
  Weight: 81.1 kg

DRUGS (32)
  1. TRASTUZUMAB DERUXTECAN. [Suspect]
     Active Substance: TRASTUZUMAB DERUXTECAN
     Indication: HER2 POSITIVE BREAST CANCER
     Dosage: 5.4 MG/KG, ONCE EVERY 3 WK
     Route: 042
     Dates: start: 20191025, end: 20191025
  2. TRASTUZUMAB DERUXTECAN. [Suspect]
     Active Substance: TRASTUZUMAB DERUXTECAN
     Dosage: 5.4 MG/KG, ONCE EVERY 3 WK
     Route: 042
     Dates: start: 20200207, end: 20200207
  3. TRASTUZUMAB DERUXTECAN. [Suspect]
     Active Substance: TRASTUZUMAB DERUXTECAN
     Dosage: 5.4 MG/KG, ONCE EVERY 3 WK
     Route: 042
     Dates: start: 20200923, end: 20200923
  4. TRASTUZUMAB DERUXTECAN. [Suspect]
     Active Substance: TRASTUZUMAB DERUXTECAN
     Dosage: 5.4 MG/KG, ONCE EVERY 3 WK
     Route: 042
     Dates: start: 20201014, end: 20201014
  5. METOCLOPRAMIDE. [Concomitant]
     Active Substance: METOCLOPRAMIDE
     Indication: NAUSEA
     Dosage: 10 MG, TID
     Route: 048
     Dates: start: 20191116, end: 20200229
  6. METOCLOPRAMIDE. [Concomitant]
     Active Substance: METOCLOPRAMIDE
     Indication: VOMITING
  7. DORFLEX [Concomitant]
     Active Substance: CAFFEINE\DIPYRONE\ORPHENADRINE
     Indication: SPINAL PAIN
     Dosage: 1 DF, QD
     Route: 048
     Dates: start: 20200103
  8. NIMESULIDE [Concomitant]
     Active Substance: NIMESULIDE
     Indication: SPINAL PAIN
     Dosage: 100 MG, QD
     Route: 048
     Dates: start: 20200103
  9. LEVOFLOXACIN. [Concomitant]
     Active Substance: LEVOFLOXACIN
     Indication: PNEUMONIA
     Dosage: 750 MG, QD
     Route: 048
     Dates: start: 20200302, end: 20200308
  10. LEVOFLOXACIN. [Concomitant]
     Active Substance: LEVOFLOXACIN
     Indication: PHARYNGITIS
  11. TRASTUZUMAB DERUXTECAN. [Suspect]
     Active Substance: TRASTUZUMAB DERUXTECAN
     Dosage: 5.4 MG/KG, ONCE EVERY 3 WK
     Route: 042
     Dates: start: 20200701, end: 20200701
  12. TRASTUZUMAB DERUXTECAN. [Suspect]
     Active Substance: TRASTUZUMAB DERUXTECAN
     Dosage: 5.4 MG/KG, ONCE EVERY 3 WK
     Route: 042
     Dates: start: 20200429, end: 20200429
  13. ONDANSETRON [Concomitant]
     Active Substance: ONDANSETRON
     Indication: NAUSEA
     Dosage: 4 MG, BID
     Route: 048
     Dates: start: 20191028
  14. TRASTUZUMAB DERUXTECAN. [Suspect]
     Active Substance: TRASTUZUMAB DERUXTECAN
     Dosage: 5.4 MG/KG, ONCE EVERY 3 WK
     Route: 042
     Dates: start: 20191206, end: 20191206
  15. TRASTUZUMAB DERUXTECAN. [Suspect]
     Active Substance: TRASTUZUMAB DERUXTECAN
     Dosage: 5.4 MG/KG, ONCE EVERY 3 WK
     Route: 042
     Dates: start: 20200610, end: 20200610
  16. TRASTUZUMAB DERUXTECAN. [Suspect]
     Active Substance: TRASTUZUMAB DERUXTECAN
     Dosage: 5.4 MG/KG, ONCE EVERY 3 WK
     Route: 042
     Dates: start: 20200720, end: 20200720
  17. TRASTUZUMAB DERUXTECAN. [Suspect]
     Active Substance: TRASTUZUMAB DERUXTECAN
     Dosage: 5.4 MG/KG, ONCE EVERY 3 WK
     Route: 042
     Dates: start: 20200902, end: 20200902
  18. DRAMIN [Concomitant]
     Active Substance: DIMENHYDRINATE
     Indication: NAUSEA
     Dosage: 100 MG, TID
     Route: 048
     Dates: start: 20191208
  19. TRASTUZUMAB DERUXTECAN. [Suspect]
     Active Substance: TRASTUZUMAB DERUXTECAN
     Dosage: 5.4 MG/KG, ONCE EVERY 3 WK
     Route: 042
     Dates: start: 20200228, end: 20200228
  20. TRASTUZUMAB DERUXTECAN. [Suspect]
     Active Substance: TRASTUZUMAB DERUXTECAN
     Dosage: 5.4 MG/KG, ONCE EVERY 3 WK
     Route: 042
     Dates: start: 20201104, end: 20201104
  21. TRASTUZUMAB DERUXTECAN. [Suspect]
     Active Substance: TRASTUZUMAB DERUXTECAN
     Dosage: 5.4 MG/KG, ONCE EVERY 3 WK
     Route: 042
     Dates: start: 20191226, end: 20191226
  22. TRASTUZUMAB DERUXTECAN. [Suspect]
     Active Substance: TRASTUZUMAB DERUXTECAN
     Dosage: 5.4 MG/KG, ONCE EVERY 3 WK
     Route: 042
     Dates: start: 20200522, end: 20200522
  23. OMEPRAZOLE. [Concomitant]
     Active Substance: OMEPRAZOLE
     Indication: PROPHYLAXIS
     Dosage: 20 MG, QD
     Route: 048
     Dates: start: 20191122
  24. ONDANSETRON [Concomitant]
     Active Substance: ONDANSETRON
     Indication: VOMITING
  25. TYLEX                              /00020001/ [Concomitant]
     Active Substance: ACETAMINOPHEN
     Indication: HEADACHE
     Dosage: 1 DF, QID
     Route: 048
     Dates: start: 20191212
  26. CYCLOBENZAPRINE. [Concomitant]
     Active Substance: CYCLOBENZAPRINE
     Indication: SPINAL PAIN
     Dosage: 5 MG, QD
     Route: 048
     Dates: start: 20200103
  27. TRASTUZUMAB DERUXTECAN. [Suspect]
     Active Substance: TRASTUZUMAB DERUXTECAN
     Indication: BREAST CANCER METASTATIC
     Dosage: 5.4 MG/KG, ONCE EVERY 3 WK
     Route: 042
     Dates: start: 20191114, end: 20191114
  28. TRASTUZUMAB DERUXTECAN. [Suspect]
     Active Substance: TRASTUZUMAB DERUXTECAN
     Dosage: 5.4 MG/KG, ONCE EVERY 3 WK
     Route: 042
     Dates: start: 20200117, end: 20200117
  29. TRASTUZUMAB DERUXTECAN. [Suspect]
     Active Substance: TRASTUZUMAB DERUXTECAN
     Dosage: 5.4 MG/KG, ONCE EVERY 3 WK
     Route: 042
     Dates: start: 20200409, end: 20200409
  30. TRASTUZUMAB DERUXTECAN. [Suspect]
     Active Substance: TRASTUZUMAB DERUXTECAN
     Dosage: 5.4 MG/KG, ONCE EVERY 3 WK
     Route: 042
     Dates: start: 20200812, end: 20200812
  31. TRASTUZUMAB DERUXTECAN. [Suspect]
     Active Substance: TRASTUZUMAB DERUXTECAN
     Dosage: 5.4 MG/KG, ONCE EVERY 3 WK
     Route: 042
     Dates: start: 20200318, end: 20200318
  32. CHLORPROMAZINE. [Concomitant]
     Active Substance: CHLORPROMAZINE
     Indication: NAUSEA
     Dosage: 25 UG, BID
     Route: 048
     Dates: start: 20191211

REACTIONS (2)
  - Pharyngitis [Recovered/Resolved]
  - Pneumonia [Recovered/Resolved]

NARRATIVE: CASE EVENT DATE: 20200308
